FAERS Safety Report 5477647-7 (Version None)
Quarter: 2007Q4

REPORT INFORMATION
  Report Type: 
  Country: None (occurrence: None)
  Receive Date: 20071002
  Receipt Date: 20070731
  Transmission Date: 20080405
  Serious: Yes (Life-Threatening, Other)
  Sender: FDA-Public Use
  Company Number: 2007RR-09630

PATIENT
  Age: 74 Year
  Sex: Female

DRUGS (2)
  1. DICLOFENAC SODIUM       (DICLOFENAC) [Suspect]
     Dosage: INTRAVENOUS
     Route: 042
  2. VERAPAMIL         (VERAPAMIL HYDROCHLORIDE) [Suspect]
     Dosage: INTRAVENOUS
     Route: 042

REACTIONS (3)
  - INCORRECT ROUTE OF DRUG ADMINISTRATION [None]
  - MEDICATION ERROR [None]
  - RESPIRATORY ARREST [None]
